FAERS Safety Report 6981367-7 (Version None)
Quarter: 2010Q3

REPORT INFORMATION
  Report Type: 
  Country: None (occurrence: None)
  Receive Date: 20100914
  Receipt Date: 20100804
  Transmission Date: 20110219
  Serious: Yes (Other)
  Sender: FDA-Public Use
  Company Number: US-BAXTER-2010BH003540

PATIENT
  Age: 44 Year
  Sex: Female
  Weight: 61 kg

DRUGS (21)
  1. HEPARIN SODIUM INJECTION [Suspect]
     Indication: HAEMODIALYSIS
     Route: 042
     Dates: start: 20070925
  2. HEPARIN SODIUM INJECTION [Suspect]
     Route: 042
     Dates: start: 20070901, end: 20070901
  3. HEPARIN SODIUM INJECTION [Suspect]
     Route: 042
     Dates: start: 20070904, end: 20070904
  4. HEPARIN SODIUM INJECTION [Suspect]
     Route: 042
     Dates: start: 20070906, end: 20070906
  5. HEPARIN SODIUM INJECTION [Suspect]
     Route: 042
     Dates: start: 20070908, end: 20070908
  6. HEPARIN SODIUM INJECTION [Suspect]
     Route: 042
     Dates: start: 20070911, end: 20070911
  7. HEPARIN SODIUM INJECTION [Suspect]
     Route: 042
     Dates: start: 20070913, end: 20070913
  8. HEPARIN SODIUM INJECTION [Suspect]
     Route: 042
     Dates: start: 20070915, end: 20070915
  9. HEPARIN SODIUM INJECTION [Suspect]
     Route: 042
     Dates: start: 20070918, end: 20070918
  10. HEPARIN SODIUM INJECTION [Suspect]
     Route: 042
     Dates: start: 20070920, end: 20070920
  11. HEPARIN SODIUM INJECTION [Suspect]
     Route: 042
     Dates: start: 20070921, end: 20070921
  12. HEPARIN SODIUM INJECTION [Suspect]
     Route: 042
     Dates: start: 20070922, end: 20070922
  13. HEPARIN SODIUM INJECTION [Suspect]
     Route: 042
     Dates: start: 20070925, end: 20070925
  14. HEPARIN SODIUM INJECTION [Suspect]
     Route: 042
     Dates: start: 20070927, end: 20070927
  15. AMBIEN [Concomitant]
     Indication: PRODUCT USED FOR UNKNOWN INDICATION
     Route: 065
  16. INSULIN [Concomitant]
     Indication: PRODUCT USED FOR UNKNOWN INDICATION
     Route: 065
  17. IRON [Concomitant]
     Indication: PRODUCT USED FOR UNKNOWN INDICATION
     Route: 065
  18. NEURONTIN [Concomitant]
     Indication: PRODUCT USED FOR UNKNOWN INDICATION
     Route: 065
  19. FUROSEMIDE [Concomitant]
     Indication: PRODUCT USED FOR UNKNOWN INDICATION
     Route: 065
  20. CELEXA [Concomitant]
     Indication: PRODUCT USED FOR UNKNOWN INDICATION
     Route: 065
  21. EPOETIN NOS [Concomitant]
     Indication: PRODUCT USED FOR UNKNOWN INDICATION
     Route: 065

REACTIONS (7)
  - ASTHENIA [None]
  - DIZZINESS [None]
  - ERYTHEMA [None]
  - HYPOTENSION [None]
  - MUSCLE SPASMS [None]
  - PRURITUS [None]
  - RASH [None]
